FAERS Safety Report 23608735 (Version 1)
Quarter: 2024Q1

REPORT INFORMATION
  Report Type: Spontaneous
  Country: US (occurrence: US)
  Receive Date: 20240308
  Receipt Date: 20240308
  Transmission Date: 20240410
  Serious: No
  Sender: FDA-Public Use
  Company Number: US-SA-SAC20240307000173

PATIENT
  Age: 51 Year
  Sex: Female
  Weight: 80.6 kg

DRUGS (6)
  1. DUPIXENT [Suspect]
     Active Substance: DUPILUMAB
     Indication: Dermatitis atopic
     Dosage: 300 MG, QOW
     Route: 058
  2. IVERMECTIN [Concomitant]
     Active Substance: IVERMECTIN
  3. PROTOPIC [Concomitant]
     Active Substance: TACROLIMUS
  4. SPIRONOLACTONE [Concomitant]
     Active Substance: SPIRONOLACTONE
  5. BETAMETHASONE DIPROPIONATE [Concomitant]
     Active Substance: BETAMETHASONE DIPROPIONATE
  6. MELOXICAM [Concomitant]
     Active Substance: MELOXICAM

REACTIONS (3)
  - Vision blurred [Unknown]
  - Visual impairment [Unknown]
  - Dry eye [Unknown]

NARRATIVE: CASE EVENT DATE: 20240201
